FAERS Safety Report 6314038-0 (Version None)
Quarter: 2009Q3

REPORT INFORMATION
  Report Type: 
  Country: None (occurrence: None)
  Receive Date: 20090818
  Receipt Date: 20090810
  Transmission Date: 20100115
  Serious: Yes (Hospitalization, Other)
  Sender: FDA-Public Use
  Company Number: PHHO2009JP03757

PATIENT
  Sex: Male
  Weight: 55 kg

DRUGS (10)
  1. RAD 666 RAD+TAB+CMAS [Suspect]
     Indication: RENAL CANCER METASTATIC
     Dosage: 10 MG, QD
     Route: 048
     Dates: start: 20070307, end: 20090403
  2. LONGES [Concomitant]
     Indication: HYPERTENSION
  3. ALOSITOL [Concomitant]
     Indication: HYPERURICAEMIA
  4. HALCION [Concomitant]
     Indication: INSOMNIA
  5. MAGLAX [Concomitant]
     Indication: CONSTIPATION
     Dosage: UNK
     Dates: start: 20070518
  6. TALION [Concomitant]
     Indication: PRURITUS
     Dosage: UNK
     Dates: start: 20080111
  7. UREPEARL [Concomitant]
     Indication: PRURITUS
     Dosage: UNK
     Dates: start: 20081107
  8. GARASONE [Concomitant]
     Indication: PRURITUS
     Dosage: UNK
     Dates: start: 20081205
  9. STOGAR [Concomitant]
     Indication: GASTRIC ULCER
     Dosage: UNK
     Dates: start: 20090105
  10. MUCOSTA [Concomitant]
     Indication: GASTRIC ULCER
     Dosage: UNK
     Dates: start: 20090105

REACTIONS (27)
  - ARRHYTHMIA [None]
  - ATELECTASIS [None]
  - ATRIAL FIBRILLATION [None]
  - CONSTIPATION [None]
  - COUGH [None]
  - DIARRHOEA [None]
  - DYSGEUSIA [None]
  - EYELID OEDEMA [None]
  - GENERAL PHYSICAL HEALTH DETERIORATION [None]
  - HYPERKALAEMIA [None]
  - HYPERTENSION [None]
  - MALAISE [None]
  - MALIGNANT NEOPLASM PROGRESSION [None]
  - MALIGNANT PLEURAL EFFUSION [None]
  - METASTASES TO LUNG [None]
  - ONYCHOCLASIS [None]
  - PAIN [None]
  - PERIPHERAL COLDNESS [None]
  - PLEURAL HAEMORRHAGE [None]
  - PLEURODESIS [None]
  - PNEUMONIA [None]
  - PRODUCTIVE COUGH [None]
  - PRURITUS [None]
  - RASH [None]
  - RHINORRHOEA [None]
  - THORACIC CAVITY DRAINAGE [None]
  - WEIGHT DECREASED [None]
